FAERS Safety Report 17170919 (Version 1)
Quarter: 2019Q4

REPORT INFORMATION
  Report Type: Report from Study
  Country: US (occurrence: US)
  Receive Date: 20191218
  Receipt Date: 20191218
  Transmission Date: 20200122
  Serious: Yes (Hospitalization, Other)
  Sender: FDA-Public Use
  Company Number: US-BRISTOL-MYERS SQUIBB COMPANY-BMS-2019-119024

PATIENT
  Age: 60 Year
  Sex: Male
  Weight: 99.5 kg

DRUGS (2)
  1. NIVOLUMAB [Suspect]
     Active Substance: NIVOLUMAB
     Indication: BLADDER CANCER
     Dosage: 296 MILLIGRAM
     Route: 042
     Dates: start: 20190424, end: 20190717
  2. CABOZANTINIB [Suspect]
     Active Substance: CABOZANTINIB
     Indication: BLADDER CANCER
     Dosage: 40 MILLIGRAM
     Route: 048
     Dates: start: 20190424, end: 20190730

REACTIONS (8)
  - Dehydration [Recovered/Resolved]
  - Abdominal pain [Recovered/Resolved]
  - Vomiting [Recovered/Resolved]
  - Anaemia [Unknown]
  - Nausea [Recovered/Resolved]
  - Decreased appetite [Recovered/Resolved]
  - Acute kidney injury [Recovered/Resolved]
  - Dyspnoea [Recovered/Resolved]

NARRATIVE: CASE EVENT DATE: 20190720
